FAERS Safety Report 19605427 (Version 1)
Quarter: 2021Q3

REPORT INFORMATION
  Report Type: Spontaneous
  Country: CN (occurrence: CN)
  Receive Date: 20210723
  Receipt Date: 20210723
  Transmission Date: 20211014
  Serious: Yes (Other)
  Sender: FDA-Public Use
  Company Number: CN-ROCHE-2876007

PATIENT
  Age: 53 Year
  Sex: Female
  Weight: 46 kg

DRUGS (8)
  1. AVASTIN [Suspect]
     Active Substance: BEVACIZUMAB
     Dosage: FOR 8 CYCLES
     Route: 065
     Dates: start: 20171101, end: 20190109
  2. OXALIPLATIN. [Concomitant]
     Active Substance: OXALIPLATIN
     Indication: RECTAL ADENOCARCINOMA
     Dosage: FOR 8 CYCLES
     Dates: start: 20171101, end: 20190109
  3. AVASTIN [Suspect]
     Active Substance: BEVACIZUMAB
     Indication: RECTAL ADENOCARCINOMA
     Dosage: FOR 2 TIMES
     Route: 065
     Dates: start: 20150813, end: 20170719
  4. 5?FLUOROURACIL [Concomitant]
     Active Substance: FLUOROURACIL
     Indication: RECTAL ADENOCARCINOMA
     Dosage: FOR 8 CYCLES
     Dates: start: 20171101, end: 20190109
  5. IRINOTECAN [Concomitant]
     Active Substance: IRINOTECAN
     Indication: RECTAL ADENOCARCINOMA
     Dosage: FOR 7 CYCLES
     Dates: start: 20190329, end: 20190917
  6. IRINOTECAN [Concomitant]
     Active Substance: IRINOTECAN
     Dosage: ON 29 OCT 2019, 20 NOV 2019, 10 DEC 2019 FOR 3 CYCLES
     Dates: start: 20191029
  7. CALCIUM FOLINATE [Concomitant]
     Active Substance: LEUCOVORIN CALCIUM
     Indication: RECTAL ADENOCARCINOMA
     Dosage: FOR 8 CYCLES
     Dates: start: 20171101, end: 20190109
  8. REGORAFENIB. [Concomitant]
     Active Substance: REGORAFENIB
     Indication: RECTAL ADENOCARCINOMA
     Dosage: AT 160 MG PER DAY, FROM DAY 1 TO DAY 21, ONE CYCLE WAS 4 WEEKS. THE DOSE WAS GRADUALLY REDUCED TO 80
     Dates: start: 20200105

REACTIONS (1)
  - Palmar-plantar erythrodysaesthesia syndrome [Unknown]
